FAERS Safety Report 9520756 (Version 1)
Quarter: 2013Q3

REPORT INFORMATION
  Report Type: Spontaneous
  Country: GB (occurrence: None)
  Receive Date: 20130911
  Receipt Date: 20130911
  Transmission Date: 20140515
  Serious: Yes (Other)
  Sender: FDA-Public Use
  Company Number: 2013AP007813

PATIENT
  Age: 61 Year
  Sex: Female

DRUGS (3)
  1. ALENDRONATE (ALENDRONATE SODIUM) [Suspect]
     Indication: OSTEOPOROSIS
     Route: 048
  2. CALCIUM CARBONATE (CALCIUM CARBONATE) [Concomitant]
  3. CO-CODAMOL (PANADEINE CO) [Concomitant]

REACTIONS (4)
  - Sensory disturbance [None]
  - Gait disturbance [None]
  - Feeling drunk [None]
  - Vertigo [None]
